FAERS Safety Report 8263868-7 (Version None)
Quarter: 2012Q2

REPORT INFORMATION
  Report Type: 
  Country: None (occurrence: None)
  Receive Date: 20120405
  Receipt Date: 20120330
  Transmission Date: 20120825
  Serious: Yes (Other)
  Sender: FDA-Public Use
  Company Number: CH-GILEAD-2012-0052331

PATIENT
  Sex: Male

DRUGS (6)
  1. ATAZANAVIR [Suspect]
     Indication: HIV INFECTION
     Dosage: 300 UNKNOWN, UNK
     Route: 048
     Dates: start: 20110309, end: 20120210
  2. HYDROCHLOROTHIAZIDE [Suspect]
     Indication: RENAL FAILURE
     Dosage: 12.5 UNKNOWN, UNK
     Route: 048
     Dates: start: 20100101, end: 20120210
  3. QUINAPRIL [Suspect]
     Indication: RENAL FAILURE
     Dosage: 10 UNKNOWN, UNK
     Route: 048
     Dates: start: 20100101, end: 20120210
  4. RITONAVIR [Concomitant]
     Indication: HIV INFECTION
     Dosage: UNK
     Dates: start: 20110309, end: 20120210
  5. ROSUVASTATIN CALCIUM [Concomitant]
     Indication: RENAL FAILURE
     Dosage: UNK
     Dates: start: 20110309, end: 20120210
  6. TRUVADA [Suspect]
     Indication: HIV INFECTION
     Dosage: UNK
     Route: 048
     Dates: start: 20110309, end: 20120210

REACTIONS (3)
  - BLOOD CREATININE INCREASED [None]
  - UNDERDOSE [None]
  - OVERDOSE [None]
